FAERS Safety Report 11819524 (Version 1)
Quarter: 2015Q4

REPORT INFORMATION
  Report Type: Spontaneous
  Country: US (occurrence: US)
  Receive Date: 20151210
  Receipt Date: 20151210
  Transmission Date: 20160305
  Serious: No
  Sender: FDA-Public Use
  Company Number: US-JNJFOC-20151006742

PATIENT
  Age: 24 Year
  Sex: Male
  Weight: 54.43 kg

DRUGS (1)
  1. SPORANOX [Suspect]
     Active Substance: ITRACONAZOLE
     Indication: FUNGAL INFECTION
     Route: 048
     Dates: start: 20151007

REACTIONS (1)
  - Drug ineffective [Unknown]

NARRATIVE: CASE EVENT DATE: 20151008
